FAERS Safety Report 4462735-4 (Version None)
Quarter: 2004Q3

REPORT INFORMATION
  Report Type: 
  Country: None (occurrence: None)
  Receive Date: 20040930
  Receipt Date: 20040921
  Transmission Date: 20050211
  Serious: Yes (Other)
  Sender: FDA-Public Use
  Company Number: US-JNJFOC-20040907152

PATIENT
  Sex: Female

DRUGS (1)
  1. REMICADE [Suspect]
     Indication: CROHN'S DISEASE

REACTIONS (3)
  - BREECH PRESENTATION [None]
  - MATERNAL DRUGS AFFECTING FOETUS [None]
  - PREMATURE BABY [None]
